FAERS Safety Report 18337482 (Version 1)
Quarter: 2020Q4

REPORT INFORMATION
  Report Type: Spontaneous
  Country: US (occurrence: US)
  Receive Date: 20201002
  Receipt Date: 20201002
  Transmission Date: 20210113
  Serious: Yes (Other)
  Sender: FDA-Public Use
  Company Number: US-TEVA-2020-US-1833607

PATIENT
  Age: 62 Year
  Sex: Female

DRUGS (1)
  1. COPAXONE [Suspect]
     Active Substance: GLATIRAMER ACETATE
     Dosage: FORM OF ADMINISTRATION AND FORM STRENGTH: UNKNOWN/USING THE PRODUCT FOR 12 YEARS
     Route: 065

REACTIONS (5)
  - Therapy non-responder [Unknown]
  - Injection site scar [Unknown]
  - Injection site atrophy [Unknown]
  - Injection site urticaria [Unknown]
  - Multiple sclerosis relapse [Unknown]
